FAERS Safety Report 15584741 (Version 1)
Quarter: 2018Q4

REPORT INFORMATION
  Report Type: Spontaneous
  Country: US (occurrence: US)
  Receive Date: 20181102
  Receipt Date: 20181102
  Transmission Date: 20190205
  Serious: Yes (Other)
  Sender: FDA-Public Use
  Company Number: US-PFIZER INC-2018437448

PATIENT
  Age: 74 Year
  Sex: Female
  Weight: 87.9 kg

DRUGS (2)
  1. DESVENLAFAXINE SUCCINATE MONOHYDRATE [Suspect]
     Active Substance: DESVENLAFAXINE SUCCINATE
     Indication: BIPOLAR DISORDER
     Dosage: UNK
     Dates: start: 2013, end: 2014
  2. DESVENLAFAXINE SUCCINATE MONOHYDRATE [Suspect]
     Active Substance: DESVENLAFAXINE SUCCINATE
     Dosage: UNK

REACTIONS (4)
  - Cardiac disorder [Unknown]
  - Product use in unapproved indication [Unknown]
  - Hypersensitivity [Recovered/Resolved]
  - Bradycardia [Unknown]

NARRATIVE: CASE EVENT DATE: 2013
